FAERS Safety Report 5268408-2 (Version None)
Quarter: 2007Q1

REPORT INFORMATION
  Report Type: 
  Country: None (occurrence: None)
  Receive Date: 20061213
  Receipt Date: 20040910
  Transmission Date: 20070707
  Serious: Yes (Hospitalization)
  Sender: FDA-Public Use
  Company Number: 2004UW19126

PATIENT

DRUGS (1)
  1. IRESSA [Suspect]

REACTIONS (1)
  - INTERSTITIAL LUNG DISEASE [None]
